FAERS Safety Report 25667721 (Version 1)
Quarter: 2025Q3

REPORT INFORMATION
  Report Type: Report from Study
  Country: EU (occurrence: EU)
  Receive Date: 20250811
  Receipt Date: 20250811
  Transmission Date: 20251020
  Serious: Yes (Hospitalization)
  Sender: ABBVIE
  Company Number: EU-ABBVIE-6405074

PATIENT
  Age: 75 Year
  Sex: Female
  Weight: 64 kg

DRUGS (1)
  1. FOSCARBIDOPA\FOSLEVODOPA [Suspect]
     Active Substance: FOSCARBIDOPA\FOSLEVODOPA
     Indication: Parkinson^s disease
     Route: 058
     Dates: start: 20250722, end: 20250801

REACTIONS (5)
  - Palpitations [Unknown]
  - Hyperventilation [Unknown]
  - Anxiety [Unknown]
  - Hallucination [Unknown]
  - Panic attack [Unknown]

NARRATIVE: CASE EVENT DATE: 20250101
